FAERS Safety Report 5509071-2 (Version None)
Quarter: 2007Q4

REPORT INFORMATION
  Report Type: 
  Country: None (occurrence: None)
  Receive Date: 20071107
  Receipt Date: 20071025
  Transmission Date: 20080405
  Serious: Yes (Hospitalization)
  Sender: FDA-Public Use
  Company Number: DK-GENENTECH-250681

PATIENT
  Sex: Male

DRUGS (8)
  1. BEVACIZUMAB [Suspect]
     Indication: GLIOBLASTOMA
     Dosage: 10 MG/KG, Q2W
     Route: 042
     Dates: start: 20070712
  2. CETUXIMAB [Suspect]
     Indication: GLIOBLASTOMA
     Dosage: 400 MG/KG, 1/WEEK
     Route: 042
     Dates: start: 20070712
  3. IRINOTECAN HCL [Suspect]
     Indication: GLIOBLASTOMA
     Dosage: 340 MG/KG, Q2W
     Route: 042
     Dates: start: 20070712
  4. CONCOMITANT UNSPECIFIED DRUG [Concomitant]
     Indication: DRUG USE FOR UNKNOWN INDICATION
     Dates: start: 20060615
  5. CONCOMITANT UNSPECIFIED DRUG [Concomitant]
  6. PREDNISOLONE [Concomitant]
     Indication: DRUG USE FOR UNKNOWN INDICATION
     Dosage: UNK, UNK
     Dates: start: 20070615
  7. SIMVASTATIN [Concomitant]
     Indication: DRUG USE FOR UNKNOWN INDICATION
  8. TRIMOPAN [Concomitant]
     Indication: DRUG USE FOR UNKNOWN INDICATION

REACTIONS (1)
  - HEMIPARESIS [None]
